FAERS Safety Report 6155047-4 (Version None)
Quarter: 2009Q2

REPORT INFORMATION
  Report Type: 
  Country: None (occurrence: None)
  Receive Date: 20090410
  Receipt Date: 20090330
  Transmission Date: 20091009
  Serious: Yes (Death, Life-Threatening, Other)
  Sender: FDA-Public Use
  Company Number: ADE2009-0533

PATIENT

DRUGS (2)
  1. CEFTRIAXONE [Suspect]
  2. CALCIUM GLUCONATE [Suspect]

REACTIONS (2)
  - CARDIO-RESPIRATORY ARREST NEONATAL [None]
  - PULMONARY EMBOLISM [None]
